FAERS Safety Report 7272704-7 (Version None)
Quarter: 2011Q1

REPORT INFORMATION
  Report Type: 
  Country: None (occurrence: None)
  Receive Date: 20110203
  Receipt Date: 20110127
  Transmission Date: 20110831
  Serious: Yes (Hospitalization)
  Sender: FDA-Public Use
  Company Number: IE-AMGEN-IRLSP2011005342

PATIENT
  Sex: Female

DRUGS (5)
  1. NEULASTA [Suspect]
     Indication: PRODUCT USED FOR UNKNOWN INDICATION
     Dosage: 6 MG, Q2WK
     Route: 058
     Dates: start: 20110113
  2. MOTILIUM                           /00498201/ [Concomitant]
  3. VALOID                             /00014901/ [Concomitant]
  4. DEXAMETHASONE [Concomitant]
  5. EMEND                              /01627301/ [Concomitant]

REACTIONS (3)
  - HEART RATE IRREGULAR [None]
  - BODY TEMPERATURE DECREASED [None]
  - HYPOTENSION [None]
